FAERS Safety Report 15300619 (Version 1)
Quarter: 2018Q3

REPORT INFORMATION
  Report Type: Spontaneous
  Country: IT (occurrence: IT)
  Receive Date: 20180821
  Receipt Date: 20180821
  Transmission Date: 20181010
  Serious: Yes (Hospitalization)
  Sender: FDA-Public Use
  Company Number: IT-ASTRAZENECA-2018SF03057

PATIENT
  Age: 73 Year
  Sex: Male

DRUGS (6)
  1. RAMIPRIL. [Concomitant]
     Active Substance: RAMIPRIL
     Dosage: 10.0MG UNKNOWN
     Route: 048
  2. SPIRONOLACTONE. [Concomitant]
     Active Substance: SPIRONOLACTONE
     Dosage: 100.0MG UNKNOWN
     Route: 048
  3. TICLOPIDINE [Suspect]
     Active Substance: TICLOPIDINE
     Indication: CAROTID ARTERY STENOSIS
     Route: 048
     Dates: start: 20080601, end: 20111115
  4. FUROSEMIDE. [Concomitant]
     Active Substance: FUROSEMIDE
     Dosage: 125.0MG UNKNOWN
     Route: 048
  5. LUCEN [Suspect]
     Active Substance: ESOMEPRAZOLE
     Indication: GASTRITIS
     Route: 048
     Dates: start: 20081001, end: 20111108
  6. LERCANIDIPINA [Concomitant]
     Active Substance: LERCANIDIPINE
     Dosage: 10.0MG UNKNOWN

REACTIONS (1)
  - Drug reaction with eosinophilia and systemic symptoms [Recovered/Resolved]

NARRATIVE: CASE EVENT DATE: 20110912
